FAERS Safety Report 18334884 (Version 2)
Quarter: 2021Q1

REPORT INFORMATION
  Report Type: Spontaneous
  Country: SE (occurrence: SE)
  Receive Date: 20201001
  Receipt Date: 20210211
  Transmission Date: 20210419
  Serious: Yes (Other)
  Sender: FDA-Public Use
  Company Number: SE-PFIZER INC-2020372182

PATIENT
  Age: 70 Year
  Sex: Male

DRUGS (4)
  1. GABAPENTIN. [Suspect]
     Active Substance: GABAPENTIN
     Dosage: UNK
  2. OLANZAPIN [Suspect]
     Active Substance: OLANZAPINE
     Dosage: UNK
  3. ACICLOVIR [Suspect]
     Active Substance: ACYCLOVIR
     Dosage: UNK
  4. BENSYLPENICILLIN [BENZYLPENICILLIN] [Suspect]
     Active Substance: PENICILLIN G
     Dosage: UNK

REACTIONS (1)
  - Acute generalised exanthematous pustulosis [Recovering/Resolving]
